FAERS Safety Report 8459115-3 (Version None)
Quarter: 2012Q2

REPORT INFORMATION
  Report Type: 
  Country: None (occurrence: None)
  Receive Date: 20120615
  Receipt Date: 20120601
  Transmission Date: 20120825
  Serious: No
  Sender: FDA-Public Use
  Company Number: EU-2012-10145

PATIENT
  Sex: Female
  Weight: 51 kg

DRUGS (5)
  1. SAMSCA [Suspect]
     Indication: DEPRESSION
     Dosage: 15 MG MILLIGRAM(S), UNK, ORAL
     Route: 048
     Dates: start: 20120423, end: 20120423
  2. SAMSCA [Suspect]
     Indication: INAPPROPRIATE ANTIDIURETIC HORMONE SECRETION
     Dosage: 15 MG MILLIGRAM(S), UNK, ORAL
     Route: 048
     Dates: start: 20120423, end: 20120423
  3. SAMSCA [Suspect]
     Indication: HYPONATRAEMIA
     Dosage: 15 MG MILLIGRAM(S), UNK, ORAL
     Route: 048
     Dates: start: 20120423, end: 20120423
  4. SALINE (SALINE), 3% PERCENT [Concomitant]
  5. SALINE (SALINE), 0.9% PERCENT [Concomitant]

REACTIONS (1)
  - NO ADVERSE EVENT [None]
